FAERS Safety Report 11054895 (Version 1)
Quarter: 2015Q2

REPORT INFORMATION
  Report Type: Spontaneous
  Country: DE (occurrence: DE)
  Receive Date: 20150422
  Receipt Date: 20150422
  Transmission Date: 20150821
  Serious: Yes (Hospitalization, Other)
  Sender: FDA-Public Use
  Company Number: DE-DRREDDYS-GER/GER/15/0047452

PATIENT
  Age: 46 Year
  Sex: Male

DRUGS (6)
  1. EDRONAX [Interacting]
     Active Substance: REBOXETINE MESYLATE
     Indication: PRODUCT USED FOR UNKNOWN INDICATION
     Dates: start: 20090219, end: 20090223
  2. EDRONAX [Interacting]
     Active Substance: REBOXETINE MESYLATE
     Dates: start: 20090224, end: 20090224
  3. EUTHYROX [Concomitant]
     Active Substance: LEVOTHYROXINE SODIUM
     Indication: PRODUCT USED FOR UNKNOWN INDICATION
  4. FLUOXETINE [Suspect]
     Active Substance: FLUOXETINE\FLUOXETINE HYDROCHLORIDE
     Indication: PRODUCT USED FOR UNKNOWN INDICATION
     Dates: end: 20090305
  5. REMERGIL [Concomitant]
     Active Substance: MIRTAZAPINE
     Indication: PRODUCT USED FOR UNKNOWN INDICATION
     Dates: end: 20090305
  6. FLUOXETINE [Interacting]
     Active Substance: FLUOXETINE\FLUOXETINE HYDROCHLORIDE
     Dates: start: 20090306, end: 20090324

REACTIONS (5)
  - Drug interaction [Unknown]
  - Ejaculation disorder [Recovered/Resolved]
  - Dysaesthesia [Recovered/Resolved]
  - Painful erection [Recovered/Resolved]
  - Urge incontinence [Recovered/Resolved]

NARRATIVE: CASE EVENT DATE: 20090222
